FAERS Safety Report 6599388-5 (Version None)
Quarter: 2010Q1

REPORT INFORMATION
  Report Type: 
  Country: None (occurrence: None)
  Receive Date: 20100224
  Receipt Date: 20100115
  Transmission Date: 20100710
  Serious: No
  Sender: FDA-Public Use
  Company Number: A0839941A

PATIENT
  Sex: Male

DRUGS (4)
  1. ARZERRA [Suspect]
     Dosage: 300MG SINGLE DOSE
     Route: 042
     Dates: start: 20091125, end: 20091202
  2. CORTICOSTEROID [Concomitant]
  3. TYLENOL-500 [Concomitant]
  4. ANTIHISTAMINE [Concomitant]

REACTIONS (1)
  - LOCAL SWELLING [None]
